FAERS Safety Report 8016965-5 (Version None)
Quarter: 2012Q1

REPORT INFORMATION
  Report Type: 
  Country: None (occurrence: None)
  Receive Date: 20120102
  Receipt Date: 20111227
  Transmission Date: 20120608
  Serious: Yes (Death, Hospitalization, Other)
  Sender: FDA-Public Use
  Company Number: PHHY2011JP19840

PATIENT
  Sex: Male
  Weight: 65 kg

DRUGS (43)
  1. EXJADE [Suspect]
     Dosage: 625 MG, DAILY
     Route: 048
     Dates: start: 20100810, end: 20100830
  2. EXJADE [Suspect]
     Dosage: 125 MG  DAILY
     Route: 048
     Dates: start: 20110301, end: 20110308
  3. EXJADE [Suspect]
     Dosage: UNK
     Route: 048
     Dates: start: 20110310, end: 20110620
  4. ZOLPIDEM [Concomitant]
     Indication: INSOMNIA
     Dosage: 10 MG, UNK
     Route: 048
     Dates: start: 20100803, end: 20110720
  5. ALLOPURINOL [Concomitant]
     Indication: PROPHYLAXIS
     Dosage: 300 MG, UNK
     Dates: start: 20110607, end: 20110720
  6. AMBISOME [Suspect]
     Dosage: 140 MG, DAILY
     Dates: start: 20110610, end: 20110627
  7. LOXONIN [Concomitant]
     Dosage: 180 MG, UNK
     Route: 048
     Dates: start: 20100812, end: 20110720
  8. RED CELLS CONCENTRATED [Concomitant]
     Dosage: 2 U, UNK
     Dates: start: 20110426
  9. EXJADE [Suspect]
     Indication: IRON OVERLOAD
     Dosage: 1500 MG,DAILY
     Route: 048
     Dates: start: 20100803, end: 20100809
  10. EXJADE [Suspect]
     Dosage: 500 MG, DAILY
     Route: 048
     Dates: start: 20100907, end: 20101015
  11. DIFLUCAN [Concomitant]
     Dosage: 100 MG, UNK
     Route: 048
     Dates: start: 20100803, end: 20101015
  12. ZITHROMAX [Concomitant]
     Dosage: 500 MG, UNK
     Dates: start: 20100810, end: 20100812
  13. LASIX [Concomitant]
     Indication: MYELODYSPLASTIC SYNDROME
     Dosage: 10 MG, UNK
     Dates: start: 20110608, end: 20110720
  14. MILMAG [Concomitant]
     Indication: PROPHYLAXIS
     Dosage: 1050 MG, UNK
     Dates: start: 20110307, end: 20110425
  15. MUCOSOLVAN [Concomitant]
     Indication: PROPHYLAXIS
     Dosage: 45 MG, UNK
     Route: 048
     Dates: start: 20110612, end: 20110720
  16. RED CELLS CONCENTRATED [Concomitant]
     Dosage: 2 U, UNK
     Dates: start: 20110318
  17. RED CELLS CONCENTRATED [Concomitant]
     Dosage: 2 U, UNK
     Dates: start: 20110524
  18. RED CELLS CONCENTRATED [Concomitant]
     Dosage: 2 U, UNK
     Dates: start: 20110617
  19. NEORAL [Suspect]
     Indication: MYELODYSPLASTIC SYNDROME
     Dosage: 200 MG, DAILY
     Route: 048
     Dates: start: 20100803, end: 20100927
  20. MAGNESIUM OXIDE [Concomitant]
     Dosage: UNK
     Route: 048
     Dates: start: 20100921, end: 20100927
  21. HYDREA [Concomitant]
     Indication: MYELODYSPLASTIC SYNDROME
     Dosage: 100 MG, UNK
     Dates: start: 20110624, end: 20110629
  22. LASTET S [Concomitant]
     Indication: MYELODYSPLASTIC SYNDROME
     Dosage: 50-100-50 MG
     Route: 048
     Dates: start: 20110609, end: 20110720
  23. RED CELLS CONCENTRATED [Concomitant]
     Dosage: 2 U, UNK
     Dates: start: 20110627
  24. EXJADE [Suspect]
     Dosage: 500 MG, DAILY
     Route: 048
     Dates: start: 20100831, end: 20100906
  25. SULFAMETHOXAZOLE AND TRIMETHOPRIM [Concomitant]
     Indication: PROPHYLAXIS
     Dosage: 80 MG, UNK
     Route: 048
     Dates: start: 20100803, end: 20110720
  26. CIPROFLOXACIN HCL [Concomitant]
     Indication: PROPHYLAXIS
     Dosage: 600 MG, UNK
     Route: 048
     Dates: start: 20100803, end: 20110721
  27. RED CELLS CONCENTRATED [Concomitant]
     Dosage: 2 U, UNK
     Dates: start: 20110412
  28. RED CELLS CONCENTRATED [Concomitant]
     Dosage: 2 U, UNK
     Dates: start: 20110620
  29. NEORAL [Suspect]
     Dosage: 20 MG, DAILY
     Route: 048
     Dates: start: 20101015, end: 20101021
  30. PRIMOBOLAN-DEPOT INJ [Concomitant]
     Indication: MYELODYSPLASTIC SYNDROME
     Dosage: 10 MG, UNK
     Route: 048
     Dates: start: 20100914, end: 20110720
  31. CEFEPIME HYDROCHLORIDE [Concomitant]
     Dosage: 1 G, UNK
     Dates: start: 20101005, end: 20101013
  32. NEORAL [Suspect]
     Dosage: 50 MG, DAILY
     Route: 048
     Dates: start: 20101009, end: 20101014
  33. AMBISOME [Suspect]
     Indication: PNEUMONIA
     Dosage: 150 MG, DAILY
     Dates: start: 20110301, end: 20110318
  34. LANSOPRAZOLE [Concomitant]
     Dosage: 15 MG, UNK
     Route: 048
     Dates: start: 20100803, end: 20101015
  35. ALLOPURINOL [Concomitant]
     Dosage: 100 MG, UNK
     Dates: start: 20110607, end: 20110720
  36. RED CELLS CONCENTRATED [Concomitant]
     Dosage: 2 U, EVERY 1.5 WEEKS
     Dates: start: 20110304, end: 20110315
  37. RED CELLS CONCENTRATED [Concomitant]
     Dosage: 2 U, UNK
     Dates: start: 20110607
  38. AMBISOME [Suspect]
     Dosage: 140 MG, DAILY
     Dates: start: 20110705, end: 20110720
  39. ROHYPNOL [Concomitant]
     Indication: INSOMNIA
     Dosage: 2 MG, UNK
     Route: 048
     Dates: start: 20100803, end: 20110720
  40. SUCRALFATE [Concomitant]
     Indication: PROPHYLAXIS
     Dosage: 3 G, UNK
     Dates: start: 20110204, end: 20110425
  41. RED CELLS CONCENTRATED [Concomitant]
     Dosage: 2 U, EVERY WEEK
     Dates: start: 20110204, end: 20110222
  42. RED CELLS CONCENTRATED [Concomitant]
     Dosage: 2 U, UNK
     Dates: start: 20110609
  43. RED CELLS CONCENTRATED [Concomitant]
     Dosage: 2 U/ 0.5 WEEKS
     Dates: start: 20110701, end: 20110715

REACTIONS (8)
  - NEOPLASM PROGRESSION [None]
  - PYREXIA [None]
  - UPPER RESPIRATORY TRACT INFLAMMATION [None]
  - WHITE BLOOD CELL COUNT INCREASED [None]
  - PNEUMONIA [None]
  - RENAL IMPAIRMENT [None]
  - NEOPLASM MALIGNANT [None]
  - PLATELET COUNT INCREASED [None]
